FAERS Safety Report 8985019 (Version 3)
Quarter: 2013Q3

REPORT INFORMATION
  Report Type: Report from Study
  Country: ES (occurrence: ES)
  Receive Date: 20121226
  Receipt Date: 20130905
  Transmission Date: 20140515
  Serious: Yes (Hospitalization)
  Sender: FDA-Public Use
  Company Number: PHHO2012ES018391

PATIENT
  Age: 58 Year
  Sex: Male
  Weight: 96 kg

DRUGS (9)
  1. NEORAL [Suspect]
     Indication: RENAL TRANSPLANT
     Dosage: 100 MG, BID
     Route: 048
     Dates: start: 20121006
  2. MYFORTIC [Suspect]
     Indication: RENAL TRANSPLANT
     Dosage: 720 MG, BID
     Route: 048
     Dates: start: 20121006
  3. DACORTIN [Suspect]
     Indication: RENAL TRANSPLANT
     Dosage: 7.5 MG, UNK
     Route: 065
     Dates: start: 20121005
  4. OMEPRAZOLE [Concomitant]
     Indication: PROPHYLAXIS AGAINST GASTROINTESTINAL ULCER
     Dosage: 20 MG, UNK
     Route: 065
     Dates: start: 20121005
  5. SEGURIL [Concomitant]
     Indication: FLUID RETENTION
     Dosage: 2 MG, UNK
     Route: 065
     Dates: start: 20121005
  6. VALCYTE [Concomitant]
     Indication: PROPHYLAXIS
     Dosage: 450 MG, UNK
     Route: 065
     Dates: start: 20121129
  7. SEPTRIN [Concomitant]
     Indication: INFECTION PROPHYLAXIS
     Dosage: 1 MG, UNK
     Route: 065
     Dates: start: 20121019
  8. ATORVASTATIN [Concomitant]
     Dosage: 20 MG, UNK
     Route: 065
     Dates: start: 20121024
  9. ALLOPURINOL [Concomitant]
     Dosage: 100 MG, UNK
     Route: 065
     Dates: start: 20121019

REACTIONS (1)
  - Renal failure [Recovering/Resolving]
